FAERS Safety Report 18566465 (Version 5)
Quarter: 2021Q1

REPORT INFORMATION
  Report Type: Report from Study
  Country: BR (occurrence: BR)
  Receive Date: 20201201
  Receipt Date: 20210115
  Transmission Date: 20210419
  Serious: Yes (Other)
  Sender: FDA-Public Use
  Company Number: NVSC2020BR319699

PATIENT
  Age: 34 Year
  Sex: Male
  Weight: 70 kg

DRUGS (14)
  1. SANDOSTATIN LAR DEPOT [Suspect]
     Active Substance: OCTREOTIDE ACETATE
     Dosage: 30 MG, QMO
     Route: 065
     Dates: start: 20200703
  2. SANDOSTATIN LAR DEPOT [Suspect]
     Active Substance: OCTREOTIDE ACETATE
     Dosage: 30 MG (DEEP IN GLUTES)
     Route: 030
     Dates: start: 20200703
  3. SANDOSTATIN LAR DEPOT [Suspect]
     Active Substance: OCTREOTIDE ACETATE
     Dosage: UNK (THIRD DOSE)
     Route: 065
     Dates: start: 20200828
  4. RIVOTRIL [Concomitant]
     Active Substance: CLONAZEPAM
     Indication: ANXIETY
     Dosage: 1.5 MG, QD (0.75 MG AT THE 1ST MEAL AFTER GETTING UP AND 075 MG AT THE END OF THE AFTER NOON OR BEGI
     Route: 048
  5. SANDOSTATIN LAR DEPOT [Suspect]
     Active Substance: OCTREOTIDE ACETATE
     Indication: ACROMEGALY
     Dosage: 30 MG, QMO (INJECTION)
     Route: 065
     Dates: start: 20200703
  6. REVOC [Concomitant]
     Indication: OBSESSIVE-COMPULSIVE DISORDER
     Dosage: UNK (WITH WATER DAILY AT THE 1ST MEAL AFTER GETTING UP)
     Route: 048
     Dates: start: 202005
  7. SOMATROPIN. [Concomitant]
     Active Substance: SOMATROPIN
     Indication: PRODUCT USED FOR UNKNOWN INDICATION
     Dosage: UNK
     Route: 065
  8. AMITRIPTYLINE [Concomitant]
     Active Substance: AMITRIPTYLINE
     Indication: ANXIETY
     Dosage: UNK (DAILY AT NIGHT)
     Route: 048
     Dates: start: 202005
  9. SANDOSTATIN LAR DEPOT [Suspect]
     Active Substance: OCTREOTIDE ACETATE
     Dosage: 30 MG, QMO (EVERY 28 DAYS)
     Route: 065
     Dates: start: 202010
  10. AMITRIPTYLINE [Concomitant]
     Active Substance: AMITRIPTYLINE
     Indication: DEPRESSIVE SYMPTOM
  11. SANDOSTATIN LAR DEPOT [Suspect]
     Active Substance: OCTREOTIDE ACETATE
     Dosage: UNK (SECOND APPLICATION)
     Route: 065
     Dates: start: 20200731
  12. ANSITEC [Concomitant]
     Active Substance: BUSPIRONE HYDROCHLORIDE
     Indication: ANXIETY
     Dosage: UNK (DAILY AFTER LUNCH)
     Route: 048
     Dates: start: 202001
  13. SANDOSTATIN LAR DEPOT [Suspect]
     Active Substance: OCTREOTIDE ACETATE
     Dosage: 30 MG
     Route: 065
     Dates: start: 20200703
  14. REVOC [Concomitant]
     Indication: DEPRESSIVE SYMPTOM

REACTIONS (38)
  - Insulin-like growth factor increased [Unknown]
  - Eructation [Not Recovered/Not Resolved]
  - Blood testosterone decreased [Recovered/Resolved]
  - Cortisol decreased [Not Recovered/Not Resolved]
  - Dysphonia [Unknown]
  - Hypogonadism [Unknown]
  - Back pain [Not Recovered/Not Resolved]
  - Blood prolactin increased [Unknown]
  - Oedema peripheral [Unknown]
  - COVID-19 [Unknown]
  - Heart rate irregular [Unknown]
  - Ingrowing nail [Not Recovered/Not Resolved]
  - Sleep apnoea syndrome [Unknown]
  - Snoring [Unknown]
  - Nail injury [Recovering/Resolving]
  - Insulin-like growth factor decreased [Not Recovered/Not Resolved]
  - Deafness [Not Recovered/Not Resolved]
  - Blood growth hormone increased [Unknown]
  - Hair colour changes [Not Recovered/Not Resolved]
  - Therapeutic response unexpected [Unknown]
  - Growth disorder [Not Recovered/Not Resolved]
  - Blood growth hormone abnormal [Not Recovered/Not Resolved]
  - Pituitary tumour [Unknown]
  - Diplopia [Unknown]
  - Nausea [Not Recovered/Not Resolved]
  - Weight decreased [Not Recovered/Not Resolved]
  - Abdominal pain upper [Not Recovered/Not Resolved]
  - Abdominal discomfort [Not Recovered/Not Resolved]
  - Drug ineffective [Unknown]
  - Alopecia [Not Recovered/Not Resolved]
  - Blood growth hormone decreased [Not Recovered/Not Resolved]
  - Blood pressure fluctuation [Recovered/Resolved]
  - Constipation [Recovering/Resolving]
  - Decreased appetite [Not Recovered/Not Resolved]
  - Malaise [Recovered/Resolved]
  - Flatulence [Not Recovered/Not Resolved]
  - Neoplasm [Unknown]
  - Injection site pain [Recovered/Resolved]

NARRATIVE: CASE EVENT DATE: 20200703
